FAERS Safety Report 4471326-0 (Version None)
Quarter: 2004Q4

REPORT INFORMATION
  Report Type: 
  Country: None (occurrence: None)
  Receive Date: 20041011
  Receipt Date: 20041006
  Transmission Date: 20050328
  Serious: Yes (Life-Threatening, Hospitalization, Disabling)
  Sender: FDA-Public Use
  Company Number: US-MERCK-0410USA00840

PATIENT
  Age: 52 Year
  Sex: Male

DRUGS (8)
  1. VICODIN [Concomitant]
     Route: 065
  2. XANAX [Concomitant]
     Route: 065
  3. WELLBUTRIN [Concomitant]
     Route: 065
  4. NIASPAN [Concomitant]
     Route: 065
  5. SEROQUEL [Concomitant]
     Route: 065
  6. ACIPHEX [Concomitant]
     Route: 065
  7. VIOXX [Suspect]
     Indication: BACK PAIN
     Route: 048
     Dates: start: 20010912, end: 20040301
  8. ZOCOR [Concomitant]
     Route: 065

REACTIONS (2)
  - CARDIAC DISORDER [None]
  - CORONARY ARTERY OCCLUSION [None]
